FAERS Safety Report 8458637-9 (Version None)
Quarter: 2012Q2

REPORT INFORMATION
  Report Type: 
  Country: None (occurrence: None)
  Receive Date: 20120622
  Receipt Date: 20120620
  Transmission Date: 20120825
  Serious: Yes (Death)
  Sender: FDA-Public Use
  Company Number: BE-SANOFI-AVENTIS-2012SA044167

PATIENT

DRUGS (4)
  1. OXALIPLATIN [Suspect]
     Indication: RECTAL CANCER
     Dosage: ADMINISTERED OVER 2 H
     Route: 042
  2. FLUOROURACIL [Suspect]
     Dosage: CONTINUOUS VERSUS INTERMITTANT DOSING OVER 46 H PERIOD; DAY1=DAY14
     Route: 065
  3. LEUCOVORIN CALCIUM [Suspect]
     Indication: RECTAL CANCER
     Dosage: ON DAY 1
     Route: 065
  4. FLUOROURACIL [Suspect]
     Indication: RECTAL CANCER
     Dosage: ON DAY 1
     Route: 040

REACTIONS (1)
  - FEBRILE NEUTROPENIA [None]
